FAERS Safety Report 4493369-3 (Version None)
Quarter: 2004Q4

REPORT INFORMATION
  Report Type: 
  Country: None (occurrence: None)
  Receive Date: 20041104
  Receipt Date: 20041018
  Transmission Date: 20050328
  Serious: Yes (Life-Threatening, Hospitalization, Disabling)
  Sender: FDA-Public Use
  Company Number: US-MERCK-0410USA02622

PATIENT
  Age: 49 Year
  Sex: Male

DRUGS (2)
  1. VIOXX [Suspect]
     Indication: POST PROCEDURAL PAIN
     Route: 048
     Dates: start: 19990101, end: 20020101
  2. DARVOCET-N 100 [Concomitant]
     Route: 065

REACTIONS (5)
  - BLOOD PRESSURE FLUCTUATION [None]
  - DEPRESSION [None]
  - HYPERTENSION [None]
  - HYPOTENSION [None]
  - IMPAIRED HEALING [None]
